FAERS Safety Report 6892914-8 (Version None)
Quarter: 2010Q3

REPORT INFORMATION
  Report Type: 
  Country: None (occurrence: None)
  Receive Date: 20100731
  Receipt Date: 20081113
  Transmission Date: 20110219
  Serious: No
  Sender: FDA-Public Use
  Company Number: US-PFIZER INC-2008096437

PATIENT
  Sex: Female
  Weight: 57.272 kg

DRUGS (3)
  1. NORVASC [Suspect]
     Indication: BLOOD PRESSURE
     Dosage: EVERY DAY,QD
     Route: 048
     Dates: start: 20000101
  2. MULTI-VITAMINS [Concomitant]
  3. CALCIUM [Concomitant]

REACTIONS (2)
  - CARDIAC DISORDER [None]
  - FOREIGN BODY [None]
